FAERS Safety Report 8816802 (Version 1)
Quarter: 2012Q4

REPORT INFORMATION
  Report Type: Spontaneous
  Country: CA (occurrence: None)
  Receive Date: 20121001
  Receipt Date: 20121001
  Transmission Date: 20130627
  Serious: Yes (Other)
  Sender: FDA-Public Use
  Company Number: COL_12390_2012

PATIENT
  Age: 50 Year
  Sex: Female

DRUGS (1)
  1. UNSPECIFIED INGREDIENT [Suspect]
     Dosage: Respiratory (inhalation)
     Route: 055
     Dates: start: 20120910, end: 20120914

REACTIONS (4)
  - Respiratory disorder [None]
  - Rash erythematous [None]
  - Multiple allergies [None]
  - Condition aggravated [None]
